FAERS Safety Report 11953350 (Version 2)
Quarter: 2017Q4

REPORT INFORMATION
  Report Type: Spontaneous
  Country: US (occurrence: US)
  Receive Date: 20160126
  Receipt Date: 20171011
  Transmission Date: 20180320
  Serious: Yes (Hospitalization, Other)
  Sender: FDA-Public Use
  Company Number: US-DSJP-DSU-2015-134071

PATIENT

DRUGS (4)
  1. BENICAR [Suspect]
     Active Substance: OLMESARTAN MEDOXOMIL
     Indication: HYPERTENSION
     Dosage: 40 MG, QD
     Route: 048
     Dates: start: 2006, end: 2014
  2. BENICAR HCT [Suspect]
     Active Substance: HYDROCHLOROTHIAZIDE\OLMESARTAN MEDOXOMIL
     Indication: HYPERTENSION
     Dosage: 20/12.5 MG, QD
     Route: 048
     Dates: start: 2005, end: 2007
  3. OXYCODONE [Concomitant]
     Active Substance: OXYCODONE
     Indication: PRODUCT USED FOR UNKNOWN INDICATION
     Dosage: UNK
     Dates: start: 2005, end: 2006
  4. DYNACIRC CR [Concomitant]
     Active Substance: ISRADIPINE
     Indication: PRODUCT USED FOR UNKNOWN INDICATION
     Dosage: UNK
     Dates: start: 2007

REACTIONS (11)
  - Diverticulitis [Unknown]
  - Gastrointestinal haemorrhage [Unknown]
  - Diverticulum intestinal [Unknown]
  - Colitis [Unknown]
  - Diverticular perforation [Unknown]
  - Acute kidney injury [Unknown]
  - Abdominal hernia repair [Unknown]
  - Malabsorption [Unknown]
  - Pseudomembranous colitis [Unknown]
  - Incisional hernia [Unknown]
  - Sepsis [Unknown]

NARRATIVE: CASE EVENT DATE: 2005
